FAERS Safety Report 6229659-3 (Version None)
Quarter: 2009Q2

REPORT INFORMATION
  Report Type: 
  Country: None (occurrence: None)
  Receive Date: 20090615
  Receipt Date: 20090608
  Transmission Date: 20091009
  Serious: Yes (Hospitalization)
  Sender: FDA-Public Use
  Company Number: B0577885A

PATIENT
  Sex: Male

DRUGS (20)
  1. AUGMENTIN '125' [Suspect]
     Indication: URINARY TRACT INFECTION
     Route: 048
     Dates: start: 20090420, end: 20090427
  2. LOVENOX [Suspect]
     Indication: THROMBOSIS PROPHYLAXIS
     Dosage: .4ML PER DAY
     Route: 058
     Dates: start: 20090424, end: 20090501
  3. ATHYMIL [Suspect]
     Indication: DEPRESSION
     Route: 048
     Dates: start: 20090425, end: 20090502
  4. INSULATARD [Concomitant]
     Route: 065
  5. AVODART [Concomitant]
     Route: 065
     Dates: end: 20090502
  6. TAMSULOSINE [Concomitant]
     Route: 065
  7. VASTAREL [Concomitant]
     Route: 065
  8. ZOLPIDEM TARTRATE [Concomitant]
     Route: 048
  9. MOXYDAR [Concomitant]
     Route: 065
  10. XANAX [Concomitant]
     Dosage: .25MG UNKNOWN
     Route: 065
     Dates: start: 20090401
  11. PREXIDINE [Concomitant]
     Route: 065
  12. CYTEAL [Concomitant]
     Route: 065
  13. HEXALYSE [Concomitant]
     Route: 065
  14. PARACETAMOL [Concomitant]
     Route: 065
  15. LOCOID [Concomitant]
     Route: 065
  16. SERESTA [Concomitant]
     Route: 065
     Dates: start: 20090415
  17. XATRAL [Concomitant]
     Route: 065
     Dates: start: 20090415, end: 20090502
  18. CACIT VIT D3 [Concomitant]
     Route: 065
     Dates: start: 20090422
  19. OROKEN [Concomitant]
     Route: 065
  20. ROCEPHIN [Concomitant]
     Route: 065

REACTIONS (4)
  - ILL-DEFINED DISORDER [None]
  - NEUTROPENIA [None]
  - PYREXIA [None]
  - THROMBOCYTOPENIA [None]
